FAERS Safety Report 5663422-7 (Version None)
Quarter: 2008Q1

REPORT INFORMATION
  Report Type: 
  Country: None (occurrence: None)
  Receive Date: 20080310
  Receipt Date: 20080228
  Transmission Date: 20080703
  Serious: Yes (Other)
  Sender: FDA-Public Use
  Company Number: 18610

PATIENT
  Age: 10 Year
  Sex: Female

DRUGS (3)
  1. METHOTREXATE [Suspect]
     Indication: ACUTE LYMPHOCYTIC LEUKAEMIA
  2. VINCRISTINE [Suspect]
     Indication: ACUTE LYMPHOCYTIC LEUKAEMIA
  3. ASPARAGINASE [Concomitant]

REACTIONS (8)
  - AREFLEXIA [None]
  - ASTHENIA [None]
  - DYSARTHRIA [None]
  - GUILLAIN-BARRE SYNDROME [None]
  - LEUKOENCEPHALOPATHY [None]
  - NEUROPATHY PERIPHERAL [None]
  - PARALYSIS [None]
  - RESPIRATORY DISORDER [None]
